FAERS Safety Report 15941553 (Version 3)
Quarter: 2019Q1

REPORT INFORMATION
  Report Type: Spontaneous
  Country: US (occurrence: US)
  Receive Date: 20190208
  Receipt Date: 20190227
  Transmission Date: 20190417
  Serious: Yes (Life-Threatening, Hospitalization, Other)
  Sender: FDA-Public Use
  Company Number: US-C B FLEET CO INC-201901-US-000308

PATIENT
  Age: 46 Year
  Sex: Male

DRUGS (2)
  1. BC (ASPIRIN\CAFFEINE) [Suspect]
     Active Substance: ASPIRIN\CAFFEINE
     Indication: PAIN
     Dosage: 4 PACKETS DAILY X 12 YEARS (ASPIRIN 845 MG AND CAFFEINE 65 MG PER PACKET)
     Route: 048
  2. BC (ASPIRIN\CAFFEINE) [Suspect]
     Active Substance: ASPIRIN\CAFFEINE
     Indication: MYALGIA

REACTIONS (6)
  - Myocardial infarction [Recovered/Resolved]
  - Gastric ulcer [Recovered/Resolved]
  - Incorrect product administration duration [None]
  - Drug dependence [Recovered/Resolved]
  - Abdominal pain upper [Recovered/Resolved]
  - Coagulopathy [Recovered/Resolved]
